FAERS Safety Report 6655429-8 (Version None)
Quarter: 2010Q1

REPORT INFORMATION
  Report Type: 
  Country: None (occurrence: None)
  Receive Date: 20100329
  Receipt Date: 20100319
  Transmission Date: 20100710
  Serious: Yes (Hospitalization)
  Sender: FDA-Public Use
  Company Number: US-ALEXION-A201000339

PATIENT
  Sex: Female

DRUGS (3)
  1. SOLIRIS [Suspect]
     Indication: PAROXYSMAL NOCTURNAL HAEMOGLOBINURIA
     Dosage: UNK
     Route: 042
     Dates: start: 20090731
  2. SOLIRIS [Suspect]
     Route: 042
  3. SOLIRIS [Suspect]
     Dosage: UNK
     Route: 042
     Dates: start: 20100312

REACTIONS (1)
  - BIOPSY BONE MARROW [None]
